FAERS Safety Report 5196868-4 (Version None)
Quarter: 2006Q4

REPORT INFORMATION
  Report Type: 
  Country: None (occurrence: None)
  Receive Date: 20061227
  Receipt Date: 20061212
  Transmission Date: 20070319
  Serious: Yes (Other)
  Sender: FDA-Public Use
  Company Number: 2006RR-04898

PATIENT
  Age: 44 Year
  Sex: Female

DRUGS (4)
  1. SIMVASTATIN [Suspect]
     Indication: BLOOD CHOLESTEROL INCREASED
     Dosage: 10 MG, ORAL
     Route: 048
     Dates: start: 20060508
  2. ASPIRIN [Concomitant]
  3. INSULINTARD [Concomitant]
  4. PORK ACTRAPID [Concomitant]

REACTIONS (1)
  - HYPERGLYCAEMIA [None]
